FAERS Safety Report 12455094 (Version 2)
Quarter: 2016Q3

REPORT INFORMATION
  Report Type: Spontaneous
  Country: FR (occurrence: FR)
  Receive Date: 20160610
  Receipt Date: 20160715
  Transmission Date: 20161109
  Serious: Yes (Other)
  Sender: FDA-Public Use
  Company Number: PHHY2016FR077180

PATIENT
  Age: 17 Year
  Sex: Female

DRUGS (6)
  1. ILARIS [Suspect]
     Active Substance: CANAKINUMAB
     Indication: LANGERHANS^ CELL HISTIOCYTOSIS
     Dosage: 150 MG, EVERY 8 WEEKS
     Route: 058
     Dates: start: 20110501
  2. MINIDRIL [Interacting]
     Active Substance: ETHINYL ESTRADIOL\LEVONORGESTREL
     Indication: PRODUCT USED FOR UNKNOWN INDICATION
     Dosage: UNK UNK, QD
     Route: 048
     Dates: start: 20141001, end: 20151126
  3. ILARIS [Interacting]
     Active Substance: CANAKINUMAB
     Dosage: 150 MG, EVERY 6 WEEKS
     Route: 058
  4. ILARIS [Interacting]
     Active Substance: CANAKINUMAB
     Dosage: 150 MG, QMO
     Route: 058
     Dates: start: 20151126
  5. ILARIS [Interacting]
     Active Substance: CANAKINUMAB
     Dosage: 150 MG, EVERY 5 WEEKS
     Route: 058
     Dates: start: 20160406
  6. ILARIS [Interacting]
     Active Substance: CANAKINUMAB
     Dosage: 150 MG, EVERY 6 WEEKS
     Route: 058
     Dates: start: 201508

REACTIONS (11)
  - Drug interaction [Unknown]
  - Lymphopenia [Unknown]
  - White blood cell count decreased [Unknown]
  - Langerhans^ cell histiocytosis [Recovered/Resolved]
  - Thrombocytopenia [Unknown]
  - C-reactive protein increased [Recovered/Resolved]
  - Drug ineffective [Unknown]
  - Product use issue [Unknown]
  - Neutrophil count decreased [Unknown]
  - Aspartate aminotransferase increased [Recovered/Resolved]
  - Alanine aminotransferase increased [Recovered/Resolved]

NARRATIVE: CASE EVENT DATE: 201507
